FAERS Safety Report 23217894 (Version 1)
Quarter: 2023Q4

REPORT INFORMATION
  Report Type: Spontaneous
  Country: None (occurrence: CN)
  Receive Date: 20231122
  Receipt Date: 20231122
  Transmission Date: 20240110
  Serious: Yes (Other)
  Sender: FDA-Public Use
  Company Number: CN-Jiangsu Hengrui Medicine Co., Ltd.-2148576

PATIENT
  Age: 31 Year
  Sex: Female
  Weight: 56 kg

DRUGS (6)
  1. CISATRACURIUM BESYLATE [Suspect]
     Active Substance: CISATRACURIUM BESYLATE
     Indication: General anaesthesia
     Route: 042
     Dates: start: 20231030, end: 20231030
  2. SUFENTANIL CITRATE [Suspect]
     Active Substance: SUFENTANIL CITRATE
     Route: 042
     Dates: start: 20231030, end: 20231030
  3. PROPOFOL [Suspect]
     Active Substance: PROPOFOL
     Route: 042
     Dates: start: 20231030, end: 20231030
  4. REMIFENTANIL HYDROCHLORIDE [Suspect]
     Active Substance: REMIFENTANIL HYDROCHLORIDE
     Route: 042
     Dates: start: 20231030, end: 20231030
  5. CALCIUM CHLORIDE\POTASSIUM CHLORIDE\SODIUM ACETATE [Concomitant]
     Active Substance: CALCIUM CHLORIDE\POTASSIUM CHLORIDE\SODIUM ACETATE
     Route: 041
     Dates: start: 20231030, end: 20231030
  6. COMPOUND SODIUM CHLORIDE           /06440701/ [Concomitant]
     Route: 041
     Dates: start: 20231030, end: 20231030

REACTIONS (2)
  - Nausea [Recovering/Resolving]
  - Vomiting [Recovering/Resolving]

NARRATIVE: CASE EVENT DATE: 20231030
